FAERS Safety Report 11793080 (Version 1)
Quarter: 2015Q4

REPORT INFORMATION
  Report Type: Spontaneous
  Country: US (occurrence: None)
  Receive Date: 20151130
  Receipt Date: 20151130
  Transmission Date: 20160305
  Serious: Yes (Hospitalization, Other)
  Sender: FDA-Public Use
  Company Number: 2015US-106846

PATIENT
  Age: 51 Year
  Sex: Male

DRUGS (3)
  1. CASPOFUNGIN (CASPOFUNGIN ACETATE) UNKNOWN [Suspect]
     Active Substance: CASPOFUNGIN
     Indication: CANDIDA INFECTION
     Route: 042
  2. PREDNISONE (PREDNISONE) UNKNOWN [Suspect]
     Active Substance: PREDNISONE
     Indication: PRODUCT USED FOR UNKNOWN INDICATION
  3. CASPOFUNGIN (CASPOFUNGIN ACETATE) UNKNOWN [Suspect]
     Active Substance: CASPOFUNGIN
     Indication: EMPYEMA
     Route: 042

REACTIONS (2)
  - Empyema [None]
  - Candida infection [None]
